FAERS Safety Report 12808581 (Version 1)
Quarter: 2016Q4

REPORT INFORMATION
  Report Type: Spontaneous
  Country: AU (occurrence: AU)
  Receive Date: 20161004
  Receipt Date: 20161004
  Transmission Date: 20170207
  Serious: Yes (Other)
  Sender: FDA-Public Use
  Company Number: AU-PFIZER INC-1178183

PATIENT
  Sex: Female

DRUGS (3)
  1. PAMIDRONATE DISODIUM. [Suspect]
     Active Substance: PAMIDRONATE DISODIUM
     Indication: OSTEOGENESIS IMPERFECTA
     Dosage: 30 MG/M^2 MONTHLY
     Route: 041
  2. CALCITRIOL. [Suspect]
     Active Substance: CALCITRIOL
     Indication: OSTEOGENESIS IMPERFECTA
     Dosage: 0.25MCG TWICE MONTHLY
  3. PAMIDRONATE DISODIUM. [Suspect]
     Active Substance: PAMIDRONATE DISODIUM
     Dosage: 30 MG/M^2 TWICE MONTHLY
     Route: 041

REACTIONS (1)
  - Nephrocalcinosis [Recovered/Resolved]
